FAERS Safety Report 5232798-7 (Version None)
Quarter: 2007Q1

REPORT INFORMATION
  Report Type: 
  Country: None (occurrence: None)
  Receive Date: 20070206
  Receipt Date: 20070206
  Transmission Date: 20070707
  Serious: Yes (Hospitalization)
  Sender: FDA-Public Use
  Company Number: None

PATIENT
  Age: 58 Year
  Sex: Male
  Weight: 54.4316 kg

DRUGS (4)
  1. CIPRO [Suspect]
     Indication: ABSCESS
     Dosage: 750 MG Q12HRS PO
     Route: 048
     Dates: start: 20070112, end: 20070126
  2. CIPRO [Suspect]
     Indication: PNEUMONIA
     Dosage: 750 MG Q12HRS PO
     Route: 048
     Dates: start: 20070112, end: 20070126
  3. ERTAPENEM 1 GM [Suspect]
     Indication: ABSCESS
     Dosage: 1 GM DAILY IV
     Route: 042
     Dates: start: 20070112, end: 20070126
  4. ERTAPENEM 1 GM [Suspect]
     Indication: PNEUMONIA
     Dosage: 1 GM DAILY IV
     Route: 042
     Dates: start: 20070112, end: 20070126

REACTIONS (7)
  - DIARRHOEA [None]
  - EOSINOPHILIA [None]
  - GLOMERULONEPHRITIS [None]
  - LEUKOCYTURIA [None]
  - NEPHRITIS INTERSTITIAL [None]
  - RENAL FAILURE ACUTE [None]
  - UNEVALUABLE EVENT [None]
